FAERS Safety Report 6372635-0 (Version None)
Quarter: 2009Q3

REPORT INFORMATION
  Report Type: 
  Country: None (occurrence: None)
  Receive Date: 20090924
  Receipt Date: 20090706
  Transmission Date: 20100115
  Serious: Yes (Other)
  Sender: FDA-Public Use
  Company Number: US-ASTRAZENECA-2008UW27606

PATIENT
  Age: 505 Month
  Sex: Female

DRUGS (5)
  1. SEROQUEL [Suspect]
     Indication: SCHIZOPHRENIA
     Route: 048
     Dates: start: 20000301, end: 20040501
  2. ABILIFY [Concomitant]
     Dates: start: 20040501
  3. GEODON [Concomitant]
     Dates: start: 20010301, end: 20040501
  4. HALDOL [Concomitant]
     Dates: start: 20010301, end: 20040501
  5. RISPERDAL [Concomitant]
     Dates: start: 20010301, end: 20040501

REACTIONS (4)
  - ADVERSE DRUG REACTION [None]
  - DIABETES MELLITUS [None]
  - DIABETIC KETOACIDOSIS [None]
  - WEIGHT DECREASED [None]
